FAERS Safety Report 6503079-6 (Version None)
Quarter: 2009Q4

REPORT INFORMATION
  Report Type: 
  Country: None (occurrence: None)
  Receive Date: 20091217
  Receipt Date: 20091207
  Transmission Date: 20100525
  Serious: Yes (Hospitalization)
  Sender: FDA-Public Use
  Company Number: PHHY2009FR54260

PATIENT
  Age: 67 Year
  Sex: Female

DRUGS (7)
  1. TAREG [Suspect]
     Dosage: 160 MG, QD
     Route: 048
     Dates: end: 20090917
  2. ALDALIX [Suspect]
     Dosage: 5/20 MG QD
     Dates: end: 20090917
  3. BI-PROFENID [Suspect]
     Dosage: UNK
     Dates: start: 20090801, end: 20090917
  4. TENORMIN [Concomitant]
     Dosage: 100 MG, QD
  5. SIMVASTATIN [Concomitant]
     Dosage: 10 MG, UNK
  6. KESTINE [Concomitant]
  7. IXPRIM [Concomitant]
     Dosage: 3 DF DAILY FOR 3 WEEKS

REACTIONS (5)
  - AZOTAEMIA [None]
  - HALLUCINATIONS, MIXED [None]
  - HYPERKALAEMIA [None]
  - LEUKOCYTURIA [None]
  - RENAL FAILURE ACUTE [None]
